FAERS Safety Report 8281252-7 (Version None)
Quarter: 2012Q2

REPORT INFORMATION
  Report Type: 
  Country: None (occurrence: None)
  Receive Date: 20120413
  Receipt Date: 20120405
  Transmission Date: 20120825
  Serious: Yes (Death)
  Sender: FDA-Public Use
  Company Number: US-BRISTOL-MYERS SQUIBB COMPANY-16468969

PATIENT
  Age: 65 Year
  Sex: Female

DRUGS (1)
  1. YERVOY [Suspect]
     Indication: MALIGNANT MELANOMA
     Dosage: THERAPY DATES:18JAN12 8FEB2012 29FEB2012 4 DOSES
     Route: 042
     Dates: start: 20120118, end: 20120229

REACTIONS (1)
  - DEATH [None]
